FAERS Safety Report 7115096-6 (Version None)
Quarter: 2010Q4

REPORT INFORMATION
  Report Type: 
  Country: None (occurrence: None)
  Receive Date: 20101116
  Receipt Date: 20101116
  Transmission Date: 20110411
  Serious: No
  Sender: FDA-Public Use
  Company Number: None

PATIENT
  Sex: Male
  Weight: 83.6 kg

DRUGS (6)
  1. PEG-L- ASPARAGINASE (PEGASPARGASE, ONCOSPAR) [Suspect]
     Dosage: 1000 IU
     Dates: end: 20100928
  2. VINCRISTINE SULFATE [Suspect]
     Dosage: 8 MG
     Dates: end: 20101005
  3. CYCLOPHOSPHAMIDE [Suspect]
     Dosage: 4030 MG
     Dates: end: 20100914
  4. CYTARABINE [Suspect]
     Dosage: 2428 MG
     Dates: end: 20100924
  5. MERCAPTOPURINE [Suspect]
     Dosage: 3400 MG
     Dates: end: 20100927
  6. METHOTREXATE [Suspect]
     Dosage: 60 MG
     Dates: end: 20100907

REACTIONS (1)
  - RHINITIS ALLERGIC [None]
